FAERS Safety Report 13206334 (Version 1)
Quarter: 2017Q1

REPORT INFORMATION
  Report Type: Spontaneous
  Country: US (occurrence: US)
  Receive Date: 20170209
  Receipt Date: 20170209
  Transmission Date: 20170428
  Serious: No
  Sender: FDA-Public Use
  Company Number: US-SA-2016SA197291

PATIENT
  Age: 54 Year
  Sex: Male

DRUGS (2)
  1. ALIROCUMAB PREFILLED SYRINGE [Concomitant]
     Indication: HYPERLIPIDAEMIA
     Dates: start: 20160823
  2. PRALUENT [Suspect]
     Active Substance: ALIROCUMAB
     Indication: HYPERLIPIDAEMIA
     Route: 058
     Dates: start: 20160823

REACTIONS (1)
  - Hepatic enzyme increased [Unknown]
